FAERS Safety Report 8955096 (Version 6)
Quarter: 2014Q2

REPORT INFORMATION
  Report Type: Report from Study
  Country: US (occurrence: US)
  Receive Date: 20121207
  Receipt Date: 20140516
  Transmission Date: 20141212
  Serious: Yes (Hospitalization)
  Sender: FDA-Public Use
  Company Number: US-ROCHE-1052714

PATIENT
  Sex: Female
  Weight: 85.35 kg

DRUGS (26)
  1. OMALIZUMAB [Suspect]
     Indication: ASTHMA
     Dosage: DATE OF LAST DOSE PRIOR TO SAE: 09/OCT/2012
     Route: 058
     Dates: start: 20120915
  2. OMALIZUMAB [Suspect]
     Route: 058
     Dates: start: 20120410
  3. OMALIZUMAB [Suspect]
     Route: 058
     Dates: start: 20120510
  4. OMALIZUMAB [Suspect]
     Route: 058
     Dates: start: 20120611
  5. OMALIZUMAB [Suspect]
     Route: 058
     Dates: start: 20120709
  6. OMALIZUMAB [Suspect]
     Route: 058
     Dates: start: 20120813
  7. OMALIZUMAB [Suspect]
     Route: 065
     Dates: start: 201202
  8. OMALIZUMAB [Suspect]
     Dosage: MOST RECENT DOSE RECEIVED ON 22/APR/2013
     Route: 058
     Dates: start: 20121115
  9. OMALIZUMAB [Suspect]
     Route: 065
     Dates: start: 20130520
  10. OMALIZUMAB [Suspect]
     Route: 065
     Dates: start: 20130620
  11. OMALIZUMAB [Suspect]
     Route: 065
     Dates: start: 20130722
  12. OMALIZUMAB [Suspect]
     Route: 058
     Dates: start: 20130822
  13. OMALIZUMAB [Suspect]
     Route: 058
     Dates: start: 20130923
  14. OMALIZUMAB [Suspect]
     Route: 058
     Dates: start: 20131024
  15. OMALIZUMAB [Suspect]
     Route: 065
     Dates: start: 20131125
  16. OMALIZUMAB [Suspect]
     Route: 065
     Dates: start: 20131230
  17. OMALIZUMAB [Suspect]
     Route: 065
     Dates: start: 20140204
  18. OMALIZUMAB [Suspect]
     Route: 065
     Dates: start: 20140311
  19. OMALIZUMAB [Suspect]
     Route: 065
     Dates: start: 20140415
  20. ASMANEX [Concomitant]
  21. ZYRTEC [Concomitant]
     Indication: HYPERSENSITIVITY
  22. FLONASE [Concomitant]
     Indication: HYPERSENSITIVITY
  23. EPINEPHRINE [Concomitant]
     Indication: HYPERSENSITIVITY
  24. VENTOLIN [Concomitant]
     Indication: ASTHMA
  25. SYMBICORT [Concomitant]
     Indication: ASTHMA
  26. IBUPROFEN [Concomitant]

REACTIONS (2)
  - Gestational hypertension [Recovered/Resolved]
  - Exposure during pregnancy [Unknown]
